FAERS Safety Report 16667929 (Version 2)
Quarter: 2019Q4

REPORT INFORMATION
  Report Type: Spontaneous
  Country: US (occurrence: US)
  Receive Date: 20190805
  Receipt Date: 20191025
  Transmission Date: 20200122
  Serious: No
  Sender: FDA-Public Use
  Company Number: US-GLENMARK PHARMACEUTICALS-2019GMK041737

PATIENT

DRUGS (2)
  1. ALLEGRA [Concomitant]
     Active Substance: FEXOFENADINE HYDROCHLORIDE
     Indication: HYPERSENSITIVITY
     Dosage: UNK
     Route: 065
  2. TACROZ OINTMENT 0.1% [Suspect]
     Active Substance: TACROLIMUS
     Indication: ECZEMA EYELIDS
     Dosage: UNK, BID (TWICE A DAY)
     Route: 061
     Dates: start: 20181002, end: 20190608

REACTIONS (2)
  - Drug ineffective [Unknown]
  - Eczema [Not Recovered/Not Resolved]
